FAERS Safety Report 8005707-5 (Version None)
Quarter: 2011Q4

REPORT INFORMATION
  Report Type: 
  Country: None (occurrence: None)
  Receive Date: 20111223
  Receipt Date: 20111216
  Transmission Date: 20120403
  Serious: Yes (Other)
  Sender: FDA-Public Use
  Company Number: PHHY2011FR77840

PATIENT
  Sex: Female

DRUGS (4)
  1. IRINOTECAN HCL [Suspect]
     Indication: COLORECTAL CANCER
     Dosage: 240 MG, UNK
     Route: 042
     Dates: start: 20110419, end: 20110721
  2. AVASTIN [Concomitant]
     Indication: COLORECTAL CANCER
     Dates: start: 20110419
  3. FLUOROURACIL [Suspect]
     Indication: COLORECTAL CANCER
     Dosage: 3850 MG, UNK
     Route: 042
     Dates: start: 20110419, end: 20110721
  4. FLUOROURACIL [Suspect]
     Dosage: 3850 MG, UNK
     Route: 042
     Dates: start: 20110419, end: 20110721

REACTIONS (8)
  - URINARY TRACT INFECTION [None]
  - SKIN DISORDER [None]
  - SKIN PLAQUE [None]
  - ERYTHEMA [None]
  - TOXIC SKIN ERUPTION [None]
  - PYREXIA [None]
  - ECZEMA [None]
  - PULMONARY EMBOLISM [None]
